FAERS Safety Report 12899235 (Version 1)
Quarter: 2016Q4

REPORT INFORMATION
  Report Type: Other
  Country: TR (occurrence: TR)
  Receive Date: 20161101
  Receipt Date: 20161101
  Transmission Date: 20170207
  Serious: Yes (Other)
  Sender: FDA-Public Use
  Company Number: TR-EMD SERONO-8114996

PATIENT
  Age: 36 Year
  Sex: Female

DRUGS (1)
  1. CLOMIPHENE CITRATE. [Suspect]
     Active Substance: CLOMIPHENE CITRATE
     Indication: ASSISTED FERTILISATION

REACTIONS (1)
  - Complication of pregnancy [Recovered/Resolved]
